FAERS Safety Report 23711199 (Version 1)
Quarter: 2024Q2

REPORT INFORMATION
  Report Type: Spontaneous
  Country: CN (occurrence: CN)
  Receive Date: 20240405
  Receipt Date: 20240405
  Transmission Date: 20240716
  Serious: No
  Sender: FDA-Public Use
  Company Number: CN-ALKEM LABORATORIES LIMITED-CN-ALKEM-2024-02634

PATIENT
  Age: 11 Year
  Sex: Male

DRUGS (1)
  1. SIROLIMUS [Suspect]
     Active Substance: SIROLIMUS
     Indication: PIK3CA related overgrowth spectrum
     Dosage: UNK, QD, (1.5-2 MILLIGRAM/METER SQUARE PER DAY), (CAPSULE)
     Route: 065

REACTIONS (3)
  - Swelling [Unknown]
  - Therapy partial responder [Unknown]
  - Off label use [Unknown]
